FAERS Safety Report 25910039 (Version 1)
Quarter: 2025Q4

REPORT INFORMATION
  Report Type: Spontaneous
  Country: US (occurrence: US)
  Receive Date: 20251012
  Receipt Date: 20251012
  Transmission Date: 20260118
  Serious: No
  Sender: IPSEN BIOPHARMACEUTICALS, INC.
  Company Number: US-IPSEN Group, Research and Development-2025-24964

PATIENT
  Age: 72 Year
  Sex: Female
  Weight: 47.4 kg

DRUGS (4)
  1. SOMATULINE DEPOT [Suspect]
     Active Substance: LANREOTIDE ACETATE
     Indication: Product used for unknown indication
     Dosage: SOMATULINE DEPOT 90 MG/0.3 ML PFS, INJECT 90 MG INTO THE MUSCLE
     Route: 030
  2. ZYRTEC [Concomitant]
     Active Substance: CETIRIZINE HYDROCHLORIDE
  3. SODIUM BICARBONATE [Concomitant]
     Active Substance: SODIUM BICARBONATE
  4. VELTASSA [Concomitant]
     Active Substance: PATIROMER

REACTIONS (1)
  - Illness [Unknown]
